FAERS Safety Report 20641270 (Version 5)
Quarter: 2022Q2

REPORT INFORMATION
  Report Type: Report from Study
  Country: GB (occurrence: GB)
  Receive Date: 20220328
  Receipt Date: 20220524
  Transmission Date: 20220720
  Serious: Yes (Hospitalization)
  Sender: FDA-Public Use
  Company Number: GB-ABBVIE-22K-167-4332773-00

PATIENT
  Age: 65 Year
  Sex: Male

DRUGS (3)
  1. CARBIDOPA\LEVODOPA [Suspect]
     Active Substance: CARBIDOPA\LEVODOPA
     Indication: Parkinson^s disease
     Dosage: MD 10.5, CR 5.0, ED 2.0
     Route: 050
  2. CARBIDOPA\LEVODOPA [Suspect]
     Active Substance: CARBIDOPA\LEVODOPA
  3. CARBIDOPA [Concomitant]
     Active Substance: CARBIDOPA
     Indication: Product used for unknown indication
     Dosage: 25/100MG

REACTIONS (15)
  - Gastrointestinal disorder [Unknown]
  - Sepsis [Recovered/Resolved]
  - Lower respiratory tract infection [Recovered/Resolved]
  - Stoma site infection [Unknown]
  - Malaise [Unknown]
  - Confusional state [Unknown]
  - Pyrexia [Unknown]
  - Device occlusion [Recovered/Resolved]
  - Weight decreased [Unknown]
  - Decreased appetite [Unknown]
  - Dyskinesia [Unknown]
  - Diarrhoea [Unknown]
  - Hallucination [Not Recovered/Not Resolved]
  - Stoma site discharge [Unknown]
  - Stoma site odour [Unknown]

NARRATIVE: CASE EVENT DATE: 20220101
